FAERS Safety Report 5097525-5 (Version None)
Quarter: 2006Q3

REPORT INFORMATION
  Report Type: 
  Country: None (occurrence: None)
  Receive Date: 20060901
  Receipt Date: 20060830
  Transmission Date: 20061208
  Serious: Yes (Congenital Anomaly)
  Sender: FDA-Public Use
  Company Number: NPX20060002

PATIENT
  Sex: Male
  Weight: 3.125 kg

DRUGS (4)
  1. NAPROXEN [Suspect]
     Indication: DRUG EXPOSURE DURING PREGNANCY
     Dosage: 550 MG 2X/WK TP
     Route: 064
     Dates: start: 20020101, end: 20020101
  2. BISOPROLOL FUMARATE [Suspect]
     Indication: DRUG EXPOSURE DURING PREGNANCY
     Dosage: 5 MG DAILY TP
     Route: 064
     Dates: start: 20020101, end: 20020101
  3. SUMATRIPTAN SUCCINATE [Suspect]
     Indication: DRUG EXPOSURE DURING PREGNANCY
     Dosage: 100 MG QW TP
     Route: 064
     Dates: start: 20020101, end: 20020101
  4. PARACETAMOL [Concomitant]

REACTIONS (13)
  - BREECH PRESENTATION [None]
  - CAESAREAN SECTION [None]
  - CLEFT LIP [None]
  - CLEFT PALATE [None]
  - DRUG EXPOSURE DURING PREGNANCY [None]
  - DYSMORPHISM [None]
  - HIP DYSPLASIA [None]
  - HYPERTELORISM OF ORBIT [None]
  - LIMB HYPOPLASIA CONGENITAL [None]
  - MONOPARESIS [None]
  - PHALANGEAL AGENESIS [None]
  - PHALANGEAL HYPOPLASIA [None]
  - TOE DEFORMITY [None]
